FAERS Safety Report 8009199-1 (Version None)
Quarter: 2011Q4

REPORT INFORMATION
  Report Type: 
  Country: None (occurrence: None)
  Receive Date: 20111227
  Receipt Date: 20111213
  Transmission Date: 20120403
  Serious: Yes (Hospitalization, Other)
  Sender: FDA-Public Use
  Company Number: JP-PFIZER INC-2011312481

PATIENT
  Age: 83 Year
  Sex: Male
  Weight: 50 kg

DRUGS (9)
  1. DEPAS [Concomitant]
     Dosage: UNK
     Route: 048
     Dates: end: 20110822
  2. FK [Concomitant]
     Dosage: UNK
     Route: 048
     Dates: end: 20110822
  3. AMLODIPINE [Concomitant]
     Dosage: UNK
     Route: 048
     Dates: end: 20110822
  4. DIGESTIVE ENZYMES [Concomitant]
     Dosage: UNK
     Route: 048
     Dates: end: 20110822
  5. DILTIAZEM HCL [Concomitant]
     Dosage: UNK
     Route: 048
     Dates: end: 20110822
  6. ENALAPRIL MALEATE [Concomitant]
     Dosage: UNK
     Route: 048
     Dates: end: 20110822
  7. ASPIRIN [Concomitant]
     Dosage: UNK
     Route: 048
     Dates: end: 20110822
  8. ANPLAG [Concomitant]
     Dosage: UNK
     Route: 048
     Dates: end: 20110822
  9. ATORVASTATIN CALCIUM [Suspect]
     Indication: HYPERCHOLESTEROLAEMIA
     Dosage: 10 MG, UID/QD
     Route: 048
     Dates: start: 20110621, end: 20110822

REACTIONS (1)
  - NEPHROTIC SYNDROME [None]
